FAERS Safety Report 24875801 (Version 2)
Quarter: 2025Q2

REPORT INFORMATION
  Report Type: Spontaneous
  Country: US (occurrence: US)
  Receive Date: 20250122
  Receipt Date: 20250619
  Transmission Date: 20250716
  Serious: Yes (Hospitalization, Other)
  Sender: BIOGEN
  Company Number: US-BIOGEN-2025BI01297132

PATIENT
  Sex: Male

DRUGS (1)
  1. SKYCLARYS [Suspect]
     Active Substance: OMAVELOXOLONE
     Indication: Friedreich^s ataxia
     Route: 050
     Dates: start: 202402, end: 202501

REACTIONS (4)
  - Thrombotic stroke [Not Recovered/Not Resolved]
  - Seizure [Unknown]
  - Ejection fraction decreased [Unknown]
  - Cardiac valve thickening [Unknown]

NARRATIVE: CASE EVENT DATE: 20240101
